FAERS Safety Report 15360447 (Version 4)
Quarter: 2019Q2

REPORT INFORMATION
  Report Type: Spontaneous
  Country: US (occurrence: US)
  Receive Date: 20180907
  Receipt Date: 20190628
  Transmission Date: 20190711
  Serious: Yes (Hospitalization)
  Sender: FDA-Public Use
  Company Number: US-PFIZER INC-2018361662

PATIENT
  Age: 71 Year
  Sex: Female
  Weight: 71 kg

DRUGS (5)
  1. ARMOUR THYROID [Concomitant]
     Active Substance: THYROID, PORCINE
     Indication: HYPOTHYROIDISM
     Dosage: 30 MG, UNK
     Dates: start: 20121005
  2. BABY ASPIRIN [Concomitant]
     Active Substance: ASPIRIN
     Dosage: UNK
     Dates: start: 2009
  3. LETROZOLE. [Concomitant]
     Active Substance: LETROZOLE
     Dosage: 2.5 MG, 1X/DAY
     Dates: start: 20180715, end: 20180927
  4. IBRANCE [Suspect]
     Active Substance: PALBOCICLIB
     Indication: BREAST CANCER METASTATIC
     Dosage: 125 MG, CYCLIC [ONCE A DAY FOR 21 DAYS THEN 7 DAYS OFF/DAILY FOR 21 DAYS THEN OFF FOR 7 DAYS]
     Route: 048
     Dates: start: 20180713
  5. IBRANCE [Suspect]
     Active Substance: PALBOCICLIB
     Dosage: UNK
     Dates: end: 20180925

REACTIONS (16)
  - Coordination abnormal [Recovered/Resolved]
  - Balance disorder [Recovered/Resolved]
  - White blood cell count decreased [Recovered/Resolved]
  - Nervous system disorder [Not Recovered/Not Resolved]
  - Dysgraphia [Recovered/Resolved]
  - Coccydynia [Recovered/Resolved]
  - Hand-eye coordination impaired [Recovered/Resolved]
  - Fatigue [Recovered/Resolved]
  - Dysstasia [Not Recovered/Not Resolved]
  - Weight decreased [Not Recovered/Not Resolved]
  - Decreased immune responsiveness [Recovered/Resolved]
  - Stomatitis [Recovered/Resolved]
  - Asthenia [Recovered/Resolved]
  - Alopecia [Recovered/Resolved]
  - Dizziness [Recovered/Resolved]
  - Product dose omission [Recovered/Resolved]

NARRATIVE: CASE EVENT DATE: 201808
